FAERS Safety Report 10613879 (Version 1)
Quarter: 2014Q4

REPORT INFORMATION
  Report Type: Spontaneous
  Country: GH (occurrence: GH)
  Receive Date: 20141128
  Receipt Date: 20141128
  Transmission Date: 20150529
  Serious: Yes (Hospitalization)
  Sender: FDA-Public Use
  Company Number: GH-ASTRAZENECA-2014SE90671

PATIENT
  Age: 35 Year
  Sex: Male

DRUGS (5)
  1. GENTAMYCIN [Concomitant]
     Active Substance: GENTAMICIN
  2. AMIKACIN [Concomitant]
     Active Substance: AMIKACIN
  3. MERONEM [Suspect]
     Active Substance: MEROPENEM
     Route: 042
  4. LEVOFLOXACIN. [Concomitant]
     Active Substance: LEVOFLOXACIN
  5. CEFTAZIDIME. [Concomitant]
     Active Substance: CEFTAZIDIME

REACTIONS (1)
  - Drug resistance [Unknown]
